FAERS Safety Report 15614005 (Version 2)
Quarter: 2019Q1

REPORT INFORMATION
  Report Type: Spontaneous
  Country: FR (occurrence: FR)
  Receive Date: 20181113
  Receipt Date: 20190107
  Transmission Date: 20190417
  Serious: Yes (Hospitalization)
  Sender: FDA-Public Use
  Company Number: FR-MYLANLABS-2018M1085622

PATIENT
  Age: 71 Year
  Sex: Male
  Weight: 85 kg

DRUGS (6)
  1. MALACEF [Suspect]
     Active Substance: ARTESUNATE
     Indication: MALARIA
     Dosage: UNK
     Route: 042
     Dates: start: 20180519, end: 20180524
  2. MALARONE [Suspect]
     Active Substance: ATOVAQUONE\PROGUANIL HYDROCHLORIDE
     Indication: MALARIA
     Dosage: 4 DOSAGE FORM, QD
     Route: 048
     Dates: start: 20180524, end: 20180526
  3. MEROPENEM MYLAN 1 G, POUDRE POUR SOLUTION INJECTABLE/POUR PERFUSION [Suspect]
     Active Substance: MEROPENEM
     Indication: ERYSIPELAS
     Dosage: 2 DF, QD
     Route: 042
     Dates: start: 20180522, end: 20180524
  4. ROCEPHINE [Suspect]
     Active Substance: CEFTRIAXONE SODIUM
     Indication: ERYSIPELAS
     Dosage: 1 DOSAGE FORM, QD
     Route: 042
     Dates: start: 20180524, end: 20180530
  5. PIPERACILLIN AND TAZOBACTAM [Suspect]
     Active Substance: PIPERACILLIN SODIUM\TAZOBACTAM SODIUM
     Indication: ERYSIPELAS
     Dosage: 4 DF, QD
     Route: 042
     Dates: start: 20180521, end: 20180522
  6. AUGMENTIN [Suspect]
     Active Substance: AMOXICILLIN\CLAVULANATE POTASSIUM
     Indication: ERYSIPELAS
     Dosage: 2 DF, QD
     Route: 042
     Dates: start: 20180517, end: 20180521

REACTIONS (2)
  - Neutropenia [Recovered/Resolved]
  - Confusional state [Not Recovered/Not Resolved]

NARRATIVE: CASE EVENT DATE: 20180523
